FAERS Safety Report 12668181 (Version 2)
Quarter: 2016Q3

REPORT INFORMATION
  Report Type: Spontaneous
  Country: FR (occurrence: FR)
  Receive Date: 20160819
  Receipt Date: 20160824
  Transmission Date: 20161109
  Serious: Yes (Hospitalization)
  Sender: FDA-Public Use
  Company Number: FR-PFIZER INC-2016379596

PATIENT
  Age: 75 Year
  Sex: Male

DRUGS (6)
  1. CORDARONE [Suspect]
     Active Substance: AMIODARONE HYDROCHLORIDE
     Dosage: 2 DF, 1X/DAY
     Route: 048
     Dates: start: 20151015
  2. CORDARONE [Suspect]
     Active Substance: AMIODARONE HYDROCHLORIDE
     Indication: ARRHYTHMIA
     Dosage: 400 MG, DAILY (200MG 2DF)
     Route: 048
     Dates: start: 20151009, end: 20151010
  3. BISOCE [Suspect]
     Active Substance: BISOPROLOL
     Dosage: 2.5 MG, 2X/DAY (1DF=2.5MG)
     Route: 048
     Dates: start: 20151009, end: 20151010
  4. BISOCE [Suspect]
     Active Substance: BISOPROLOL
     Dosage: 2.5 MG, 2X/DAY (1DF=2.5MG)
     Route: 048
     Dates: start: 20151015
  5. ELIQUIS [Suspect]
     Active Substance: APIXABAN
     Dosage: 5 MG, 2X/DAY (1 DF= 5MG)
     Route: 048
     Dates: start: 20151009, end: 20151010
  6. LASILIX /00032601/ [Suspect]
     Active Substance: FUROSEMIDE
     Dosage: 40 MG, 1X/DAY (1DF= 40MG)
     Route: 048
     Dates: start: 20151009

REACTIONS (3)
  - Abdominal pain upper [Unknown]
  - Transaminases increased [Recovering/Resolving]
  - Dyspepsia [Unknown]

NARRATIVE: CASE EVENT DATE: 20151010
